FAERS Safety Report 23589278 (Version 1)
Quarter: 2024Q1

REPORT INFORMATION
  Report Type: Spontaneous
  Country: US (occurrence: US)
  Receive Date: 20240303
  Receipt Date: 20240303
  Transmission Date: 20240410
  Serious: No
  Sender: FDA-Public Use
  Company Number: US-ELI_LILLY_AND_COMPANY-US202402016614

PATIENT
  Sex: Female

DRUGS (1)
  1. EMGALITY [Suspect]
     Active Substance: GALCANEZUMAB-GNLM
     Indication: Product used for unknown indication
     Dosage: 120 MG, UNKNOWN
     Route: 065
     Dates: start: 202310

REACTIONS (6)
  - Muscular weakness [Unknown]
  - Influenza like illness [Unknown]
  - Brain fog [Unknown]
  - Pyrexia [Unknown]
  - Arthralgia [Unknown]
  - Nasopharyngitis [Unknown]
